FAERS Safety Report 6265189-0 (Version None)
Quarter: 2009Q3

REPORT INFORMATION
  Report Type: 
  Country: None (occurrence: None)
  Receive Date: 20090713
  Receipt Date: 20090709
  Transmission Date: 20100115
  Serious: Yes (Death)
  Sender: FDA-Public Use
  Company Number: PHEH2009US06791

PATIENT
  Sex: Female

DRUGS (13)
  1. TASIGNA [Suspect]
     Indication: ACUTE LYMPHOCYTIC LEUKAEMIA
     Dosage: 400 MG, BID
     Route: 048
     Dates: start: 20090311, end: 20090323
  2. PREDNISONE TAB [Concomitant]
     Indication: NEOPLASM
     Dosage: 60 MG, UNK
  3. LEVOTHYROXINE [Concomitant]
     Indication: HYPOTHYROIDISM
     Dosage: .1 MG, UNK
     Route: 048
  4. ALLOPURINOL [Concomitant]
  5. ACYCLOVIR [Concomitant]
     Indication: ANTIFUNGAL PROPHYLAXIS
     Dosage: 400 MG, TID
     Route: 048
  6. POTASSIUM CHLORIDE [Concomitant]
  7. CIPRO [Concomitant]
  8. MEPRON [Concomitant]
     Indication: ANTIFUNGAL PROPHYLAXIS
     Dosage: 750 ML, UNK
     Route: 048
  9. NEURONTIN [Concomitant]
  10. AMBIEN [Concomitant]
  11. PRILOSEC [Concomitant]
     Indication: GASTRITIS PROPHYLAXIS
     Dosage: 20 MG, UNK
     Route: 048
  12. FLUCONAZOLE [Concomitant]
     Indication: ANTIFUNGAL PROPHYLAXIS
     Dosage: 100 MG, QD
     Route: 048
  13. VANCOMYCIN [Concomitant]
     Indication: BACTERAEMIA
     Dosage: 1 G EVERY 36 HOURS

REACTIONS (11)
  - ANAEMIA [None]
  - BLAST CELL COUNT INCREASED [None]
  - DEPRESSED LEVEL OF CONSCIOUSNESS [None]
  - DYSPNOEA [None]
  - LOSS OF CONSCIOUSNESS [None]
  - MALIGNANT NEOPLASM PROGRESSION [None]
  - NEUTROPENIA [None]
  - PNEUMONIA [None]
  - PYREXIA [None]
  - RALES [None]
  - THROMBOCYTOPENIA [None]
